FAERS Safety Report 4792935-5 (Version None)
Quarter: 2005Q4

REPORT INFORMATION
  Report Type: 
  Country: None (occurrence: None)
  Receive Date: 20051010
  Receipt Date: 20050824
  Transmission Date: 20060501
  Serious: Yes (Other)
  Sender: FDA-Public Use
  Company Number: PHFR2005GB02865

PATIENT

DRUGS (3)
  1. TRILEPTAL [Suspect]
     Indication: CONGENITAL NEUROLOGICAL DISORDER
  2. LAMOTRIGINE [Concomitant]
  3. VALPROATE SODIUM [Concomitant]

REACTIONS (1)
  - TUBERCULOSIS [None]
